FAERS Safety Report 9694387 (Version 3)
Quarter: 2014Q1

REPORT INFORMATION
  Report Type: Spontaneous
  Country: JP (occurrence: JP)
  Receive Date: 20131118
  Receipt Date: 20140310
  Transmission Date: 20141002
  Serious: Yes (Other)
  Sender: FDA-Public Use
  Company Number: JP-UCBSA-103164

PATIENT
  Age: 58 Year
  Sex: Female
  Weight: 53.6 kg

DRUGS (4)
  1. CIMZIA [Suspect]
     Indication: RHEUMATOID ARTHRITIS
     Dosage: 200MG SYRINGE
     Route: 058
     Dates: start: 20130816, end: 20131108
  2. RHEUMATREX [Suspect]
  3. RHEUMATREX [Suspect]
     Route: 048
     Dates: start: 20130510, end: 20131108
  4. PREDONINE [Concomitant]
     Route: 048
     Dates: start: 20130215

REACTIONS (1)
  - Breast cancer [Not Recovered/Not Resolved]
